FAERS Safety Report 9230812 (Version 1)
Quarter: 2013Q2

REPORT INFORMATION
  Report Type: Spontaneous
  Country: BR (occurrence: BR)
  Receive Date: 20130415
  Receipt Date: 20130415
  Transmission Date: 20140414
  Serious: Yes (Hospitalization, Other)
  Sender: FDA-Public Use
  Company Number: BR-ASTRAZENECA-2013SE21737

PATIENT
  Age: 737 Month
  Sex: Female

DRUGS (8)
  1. SYMBICORT TURBUHALER [Suspect]
     Indication: PULMONARY HYPERTENSION
     Dosage: 160/4.5 MCG, UNKNOWN FREQUENCY
     Route: 055
     Dates: start: 2010, end: 201212
  2. SYMBICORT TURBUHALER [Suspect]
     Indication: PULMONARY HYPERTENSION
     Dosage: 160/4.5 MCG, PRN
     Route: 055
     Dates: start: 2010, end: 201212
  3. SYMBICORT TURBUHALER [Suspect]
     Indication: PULMONARY HYPERTENSION
     Dosage: 320/9 MCG, UNKNOWN FREQUENCY
     Route: 055
     Dates: start: 201212
  4. SYMBICORT TURBUHALER [Suspect]
     Indication: PULMONARY HYPERTENSION
     Dosage: 320/9 MCG, PRN
     Route: 055
     Dates: start: 201212
  5. DIOVAN [Concomitant]
     Indication: HYPERTENSION
     Dates: start: 2010
  6. ALDACTONE [Concomitant]
     Dates: start: 2009
  7. MAREVAN [Concomitant]
     Dates: start: 2009
  8. TRACLEER [Concomitant]
     Indication: PULMONARY HYPERTENSION
     Dates: start: 2010

REACTIONS (8)
  - Dyspnoea [Recovered/Resolved]
  - Chest pain [Recovered/Resolved]
  - Right ventricular failure [Recovered/Resolved]
  - Fatigue [Recovered/Resolved]
  - Oedema peripheral [Recovered/Resolved]
  - Pulmonary hypertension [Recovered/Resolved]
  - Wheezing [Recovered/Resolved]
  - Off label use [Not Recovered/Not Resolved]
